FAERS Safety Report 8011351-6 (Version None)
Quarter: 2011Q4

REPORT INFORMATION
  Report Type: 
  Country: None (occurrence: None)
  Receive Date: 20111222
  Receipt Date: 20111215
  Transmission Date: 20120403
  Serious: Yes (Life-Threatening, Other)
  Sender: FDA-Public Use
  Company Number: 2011S1000391

PATIENT
  Age: 1 Day

DRUGS (6)
  1. DOPAMINE HCL [Concomitant]
  2. LUNG SURFACTANTS [Concomitant]
  3. INOMAX [Suspect]
     Indication: PULMONARY HYPERTENSION
     Dosage: 20 PPM;CONT;INH, 20 PPM;CONT;INH
     Route: 055
     Dates: start: 20111214, end: 20111214
  4. INOMAX [Suspect]
     Indication: PULMONARY HYPERTENSION
     Dosage: 20 PPM;CONT;INH, 20 PPM;CONT;INH
     Route: 055
     Dates: start: 20111214
  5. SODIUM CHLORIDE [Concomitant]
  6. EPINEPHRINE [Concomitant]

REACTIONS (4)
  - PNEUMOTHORAX [None]
  - OXYGEN SATURATION DECREASED [None]
  - CARDIO-RESPIRATORY ARREST NEONATAL [None]
  - BLOOD PRESSURE DECREASED [None]
